FAERS Safety Report 5962587-7 (Version None)
Quarter: 2008Q4

REPORT INFORMATION
  Report Type: 
  Country: None (occurrence: None)
  Receive Date: 20081121
  Receipt Date: 20081113
  Transmission Date: 20090506
  Serious: Yes (Hospitalization, Other)
  Sender: FDA-Public Use
  Company Number: US-PFIZER INC-2008096368

PATIENT
  Sex: Female
  Weight: 72.6 kg

DRUGS (11)
  1. TIKOSYN [Suspect]
     Indication: ATRIAL FIBRILLATION
  2. LEVOTHYROXINE SODIUM [Concomitant]
     Dosage: DAILY DOSE:100MCG
  3. VALSARTAN [Concomitant]
     Dosage: DAILY DOSE:160MG
  4. CENESTIN [Concomitant]
  5. FAMOTIDINE [Concomitant]
  6. CALCIUM CITRATE/COLECALCIFEROL [Concomitant]
     Dosage: FREQ:4-5 TABLETS DAILY
  7. WARFARIN SODIUM [Concomitant]
  8. IBANDRONATE SODIUM [Concomitant]
  9. MULTI-VITAMINS [Concomitant]
  10. BOTOX [Concomitant]
  11. TOPROL-XL [Concomitant]

REACTIONS (3)
  - ATRIAL FIBRILLATION [None]
  - EAR INFECTION [None]
  - SQUAMOUS CELL CARCINOMA [None]
